FAERS Safety Report 14183169 (Version 1)
Quarter: 2017Q4

REPORT INFORMATION
  Report Type: Spontaneous
  Country: US (occurrence: US)
  Receive Date: 20171113
  Receipt Date: 20171113
  Transmission Date: 20180321
  Serious: Yes (Death)
  Sender: FDA-Public Use
  Company Number: US-ASTELLAS-2017US046099

PATIENT
  Age: 72 Year
  Sex: Male

DRUGS (1)
  1. XTANDI [Suspect]
     Active Substance: ENZALUTAMIDE
     Indication: NEOPLASM PROSTATE
     Route: 048
     Dates: start: 20161004, end: 20171106

REACTIONS (1)
  - Death [Fatal]

NARRATIVE: CASE EVENT DATE: 20171106
